FAERS Safety Report 8607518 (Version 3)
Quarter: 2012Q4

REPORT INFORMATION
  Report Type: 
  Country: JP (occurrence: JP)
  Receive Date: 20120611
  Receipt Date: 20120907
  Transmission Date: 20130627
  Serious: Yes (Other)
  Sender: FDA-Public Use
  Company Number: PHHY2012JP047787

PATIENT
  Age: 61 Year
  Sex: Female
  Weight: 45 kg

DRUGS (2)
  1. SANDOSTATIN LAR [Suspect]
     Indication: GROWTH HORMONE-PRODUCING PITUITARY TUMOUR
     Route: 030
  2. AFINITOR [Suspect]
     Indication: PANCREATIC NEUROENDOCRINE TUMOUR
     Dates: start: 2011

REACTIONS (8)
  - Interstitial lung disease [Unknown]
  - Neoplasm progression [Unknown]
  - Malignant neoplasm progression [Unknown]
  - General physical health deterioration [Unknown]
  - Hyperglycaemia [Unknown]
  - Tongue pigmentation [Not Recovered/Not Resolved]
  - Swelling face [Not Recovered/Not Resolved]
  - Hypertension [Unknown]
